FAERS Safety Report 5455178-8 (Version None)
Quarter: 2007Q3

REPORT INFORMATION
  Report Type: 
  Country: None (occurrence: None)
  Receive Date: 20070914
  Receipt Date: 20070906
  Transmission Date: 20080115
  Serious: Yes (Other)
  Sender: FDA-Public Use
  Company Number: 2007SP015239

PATIENT
  Age: 24 Year
  Sex: Female
  Weight: 52 kg

DRUGS (5)
  1. TEMODAL [Suspect]
     Indication: ANAPLASTIC ASTROCYTOMA
     Dosage: 250 MG;QD;PO
     Route: 048
     Dates: start: 20050301
  2. CARBAMAZEPINE [Concomitant]
  3. ACETAMINOPHEN [Concomitant]
  4. BENZATHINE [Concomitant]
  5. PENICILLIN G [Concomitant]

REACTIONS (7)
  - ABORTION INDUCED [None]
  - CONVULSION [None]
  - DRUG EXPOSURE BEFORE PREGNANCY [None]
  - DRUG EXPOSURE DURING PREGNANCY [None]
  - HEADACHE [None]
  - PHARYNGITIS BACTERIAL [None]
  - PREGNANCY [None]
